FAERS Safety Report 6580101-2 (Version None)
Quarter: 2010Q1

REPORT INFORMATION
  Report Type: 
  Country: None (occurrence: None)
  Receive Date: 20100212
  Receipt Date: 20100211
  Transmission Date: 20100710
  Serious: Yes (Other)
  Sender: FDA-Public Use
  Company Number: BR-B.I. PHARMACEUTICALS,INC./RIDGEFIELD-2010-BR-00153BR

PATIENT
  Sex: Female

DRUGS (8)
  1. SPIRIVA [Suspect]
     Indication: CHRONIC OBSTRUCTIVE PULMONARY DISEASE
     Dosage: 18 MCG
     Route: 055
     Dates: start: 20090101
  2. SPIRONOLACTONE [Concomitant]
  3. FUMARATO [Concomitant]
  4. MARCUMAR [Concomitant]
     Indication: POOR PERIPHERAL CIRCULATION
  5. TREATMENT FOR BLOOD PRESSURE [Concomitant]
     Indication: BLOOD PRESSURE ABNORMAL
  6. DRAMOZEPAM [Concomitant]
  7. AMITRIPTILINA [Concomitant]
  8. OXYGEN [Concomitant]

REACTIONS (6)
  - BLOOD PRESSURE INCREASED [None]
  - CAPSULE ISSUE [None]
  - CHEST PAIN [None]
  - DYSPNOEA [None]
  - NERVOUSNESS [None]
  - PRODUCT QUALITY ISSUE [None]
